FAERS Safety Report 21388420 (Version 2)
Quarter: 2022Q3

REPORT INFORMATION
  Report Type: Spontaneous
  Country: FR (occurrence: FR)
  Receive Date: 20220928
  Receipt Date: 20220929
  Transmission Date: 20221027
  Serious: Yes (Hospitalization)
  Sender: FDA-Public Use
  Company Number: None

PATIENT
  Age: 58 Year
  Sex: Male

DRUGS (7)
  1. METHYLPREDNISOLONE SODIUM SUCCINATE [Suspect]
     Active Substance: METHYLPREDNISOLONE SODIUM SUCCINATE
     Indication: Sciatica
     Dosage: 120 MG, 1X/DAY
     Route: 042
     Dates: start: 20220816, end: 20220817
  2. PANTOPRAZOLE [Suspect]
     Active Substance: PANTOPRAZOLE
     Indication: Prophylaxis against gastrointestinal ulcer
     Dosage: 20 MG, 1X/DAY
     Route: 048
     Dates: start: 20220812, end: 20220824
  3. KETOPROFEN [Suspect]
     Active Substance: KETOPROFEN
     Indication: Sciatica
     Dosage: 100 MG, 2X/DAY (FREQ:12 H)
     Route: 048
     Dates: start: 20220812, end: 20220824
  4. LOVENOX [Suspect]
     Active Substance: ENOXAPARIN SODIUM
     Indication: Thrombosis prophylaxis
     Dosage: 4000 IU, 1X/DAY
     Route: 058
     Dates: start: 20220812, end: 20220817
  5. CODEINE PHOSPHATE [Suspect]
     Active Substance: CODEINE PHOSPHATE
     Indication: Sciatica
     Dosage: 60 MG, 3X/DAY (FREQ:8 H)
     Route: 048
     Dates: start: 20220817, end: 20220828
  6. POLYETHYLENE GLYCOLS [Suspect]
     Active Substance: POLYETHYLENE GLYCOLS
     Indication: Constipation
     Dosage: 1 DF, 1X/DAY
     Route: 048
     Dates: start: 20220812, end: 20220817
  7. PREDNISONE [Suspect]
     Active Substance: PREDNISONE
     Indication: Sciatica
     Dosage: 1 DF, SINGLE
     Route: 024
     Dates: start: 20220902, end: 20220902

REACTIONS (2)
  - Vascular purpura [Recovering/Resolving]
  - Off label use [Unknown]

NARRATIVE: CASE EVENT DATE: 20220816
